FAERS Safety Report 15498834 (Version 1)
Quarter: 2018Q4

REPORT INFORMATION
  Report Type: Spontaneous
  Country: US (occurrence: US)
  Receive Date: 20181015
  Receipt Date: 20181015
  Transmission Date: 20190205
  Serious: Yes (Other)
  Sender: FDA-Public Use
  Company Number: US-ABBVIE-18P-163-2518468-00

PATIENT
  Sex: Female

DRUGS (1)
  1. SYNTHROID [Suspect]
     Active Substance: LEVOTHYROXINE SODIUM
     Indication: PRODUCT USED FOR UNKNOWN INDICATION
     Route: 065

REACTIONS (5)
  - Blood cholesterol increased [Recovered/Resolved]
  - Blood pressure increased [Recovered/Resolved]
  - Joint swelling [Recovering/Resolving]
  - Musculoskeletal disorder [Not Recovered/Not Resolved]
  - Weight increased [Recovered/Resolved]
